FAERS Safety Report 11680718 (Version 31)
Quarter: 2018Q1

REPORT INFORMATION
  Report Type: Report from Study
  Country: US (occurrence: US)
  Receive Date: 20151029
  Receipt Date: 20180217
  Transmission Date: 20180508
  Serious: Yes (Life-Threatening, Hospitalization, Other)
  Sender: FDA-Public Use
  Company Number: US-AMGEN-USACT2015113700

PATIENT
  Age: 46 Year
  Sex: Female
  Weight: 74.1 kg

DRUGS (9)
  1. PANITUMUMAB [Suspect]
     Active Substance: PANITUMUMAB
     Indication: COLORECTAL CANCER
     Dosage: 330 MG, QD
     Route: 042
     Dates: start: 20140917
  2. DABRAFENIB [Suspect]
     Active Substance: DABRAFENIB
     Indication: COLORECTAL CANCER
     Dosage: 300 MG, UNK
     Route: 048
     Dates: start: 20150513, end: 20150930
  3. TRAMETINIB [Suspect]
     Active Substance: TRAMETINIB
     Dosage: 2 MG, UNK
     Route: 048
     Dates: start: 20151217
  4. COMPAZINE [Concomitant]
     Active Substance: PROCHLORPERAZINE MALEATE
     Indication: NAUSEA
     Dosage: 5 MG, PRN
     Route: 065
     Dates: start: 20150919, end: 20150921
  5. MUPIROCIN. [Concomitant]
     Active Substance: MUPIROCIN
     Indication: RASH
     Dosage: 2 %, BID
     Route: 061
     Dates: start: 20141112
  6. TRAMETINIB [Suspect]
     Active Substance: TRAMETINIB
     Indication: COLORECTAL CANCER
     Dosage: 2 MG, QD
     Route: 048
     Dates: start: 20140917, end: 20150930
  7. DABRAFENIB [Suspect]
     Active Substance: DABRAFENIB
     Dosage: 300 MG, QD
     Route: 048
     Dates: start: 20151217
  8. ROCEPHIN [Concomitant]
     Active Substance: CEFTRIAXONE SODIUM
     Dosage: UNK
     Dates: start: 20150419, end: 20150420
  9. PANITUMUMAB [Suspect]
     Active Substance: PANITUMUMAB
     Dosage: 6 MG/KG, CYCLICAL
     Route: 042
     Dates: start: 20150917

REACTIONS (11)
  - Haematemesis [Recovered/Resolved]
  - Sepsis [Recovered/Resolved]
  - Pyelonephritis [Recovered/Resolved]
  - Pyelonephritis [Recovered/Resolved]
  - Pyelonephritis [Recovered/Resolved]
  - Pyelonephritis [Recovered/Resolved]
  - Pyelonephritis [Recovered/Resolved]
  - Pyelonephritis [Recovered/Resolved]
  - Pyelonephritis [Recovered/Resolved]
  - Pyelonephritis [Recovered/Resolved]
  - Pyelonephritis [Not Recovered/Not Resolved]

NARRATIVE: CASE EVENT DATE: 20150327
